FAERS Safety Report 8607266-2 (Version None)
Quarter: 2012Q3

REPORT INFORMATION
  Report Type: 
  Country: None (occurrence: None)
  Receive Date: 20120821
  Receipt Date: 20120814
  Transmission Date: 20120928
  Serious: Yes (Death)
  Sender: FDA-Public Use
  Company Number: DE-GENZYME-CLOF-1002262

PATIENT
  Age: 64 Year
  Sex: Male
  Weight: 105.5 kg

DRUGS (3)
  1. CLOFARABINE [Suspect]
     Indication: ACUTE MYELOID LEUKAEMIA
     Dosage: 54.53 MG, QD
     Route: 042
     Dates: start: 20120808, end: 20120811
  2. CYTARABINE [Suspect]
     Indication: ACUTE MYELOID LEUKAEMIA
     Dosage: UNK
     Route: 065
  3. MEROPENEM [Concomitant]
     Indication: ANTIBIOTIC THERAPY
     Dosage: 1 G, TID
     Route: 042
     Dates: start: 20120810, end: 20120812

REACTIONS (2)
  - SEPSIS [None]
  - MULTI-ORGAN FAILURE [None]
